FAERS Safety Report 19670492 (Version 7)
Quarter: 2021Q4

REPORT INFORMATION
  Report Type: Report from Study
  Country: KR (occurrence: KR)
  Receive Date: 20210806
  Receipt Date: 20211229
  Transmission Date: 20220303
  Serious: Yes (Life-Threatening, Hospitalization)
  Sender: FDA-Public Use
  Company Number: KR-BRISTOL-MYERS SQUIBB COMPANY-BMS-2021-071908

PATIENT
  Age: 54 Year
  Sex: Male
  Weight: 74 kg

DRUGS (15)
  1. LINRODOSTAT MESYLATE [Suspect]
     Active Substance: LINRODOSTAT MESYLATE
     Indication: Bladder cancer
     Dosage: 1 TAB
     Route: 065
     Dates: start: 20210218, end: 20210512
  2. NIVOLUMAB [Suspect]
     Active Substance: NIVOLUMAB
     Indication: Bladder cancer
     Dosage: 360 MILLIGRAM
     Route: 042
     Dates: start: 20210218, end: 20210422
  3. CISPLATIN [Suspect]
     Active Substance: CISPLATIN
     Indication: Bladder cancer
     Dosage: 107.8 MILLIGRAM
     Route: 065
     Dates: start: 20210218, end: 20210422
  4. GEMCITABINE HYDROCHLORIDE [Suspect]
     Active Substance: GEMCITABINE HYDROCHLORIDE
     Indication: Bladder cancer
     Dosage: 1800 MILLIGRAM
     Route: 065
     Dates: start: 20210218, end: 20210429
  5. CEFOTETAN DISODIUM [Concomitant]
     Active Substance: CEFOTETAN DISODIUM
     Indication: Product used for unknown indication
     Dosage: 1 GRAM
     Route: 042
     Dates: start: 20210620, end: 20210621
  6. TERRAMYCIN OPHTHALMIC [Concomitant]
     Indication: Product used for unknown indication
     Dosage: 1 DOSAGE FORM= 1.3 UNITS NOS
     Route: 061
     Dates: start: 20210621, end: 20210811
  7. BISACODYL;DOCUSATE [Concomitant]
     Indication: Product used for unknown indication
     Dosage: 1 DOSAGE FORM = 2 UNITS NOS (BISACODYL/DOCUSATE 5/16.75MG)
     Route: 048
     Dates: start: 20210620, end: 20210620
  8. AMBROXOL [Concomitant]
     Active Substance: AMBROXOL
     Indication: Product used for unknown indication
     Dosage: 15 MILLIGRAM
     Route: 042
     Dates: start: 20210621, end: 20210628
  9. ATRACURIUM [Concomitant]
     Active Substance: ATRACURIUM
     Indication: Product used for unknown indication
     Dosage: 25 MILLIGRAM
     Route: 042
     Dates: start: 20210621, end: 20210628
  10. INDIGOCARMINE DAIICHI [Concomitant]
     Indication: Product used for unknown indication
     Dosage: 40 MILLIGRAM
     Route: 042
     Dates: start: 20210621, end: 20210621
  11. ENOXAPARIN [Concomitant]
     Active Substance: ENOXAPARIN
     Indication: Product used for unknown indication
     Dosage: 20 MILLIGRAM
     Route: 042
     Dates: start: 20210621, end: 20210621
  12. ESMOLOL [Concomitant]
     Active Substance: ESMOLOL HYDROCHLORIDE
     Indication: Product used for unknown indication
     Dosage: 20 MILLIGRAM
     Route: 042
     Dates: start: 20210621, end: 20210621
  13. FAMOTIDINE [Concomitant]
     Active Substance: FAMOTIDINE
     Indication: Product used for unknown indication
     Dosage: 20 MILLIGRAM
     Route: 042
     Dates: start: 20210621, end: 20210628
  14. FENTANYL [Concomitant]
     Active Substance: FENTANYL
     Indication: Product used for unknown indication
     Dosage: 0.1 MILLIGRAM
     Route: 042
     Dates: start: 20210621, end: 20210621
  15. GLYCOPYRROLATE [Concomitant]
     Active Substance: GLYCOPYRROLATE
     Indication: Product used for unknown indication
     Dosage: 0.4 MILLIGRAM
     Route: 042
     Dates: start: 20210607, end: 20210707

REACTIONS (1)
  - Hypopituitarism [Recovered/Resolved]

NARRATIVE: CASE EVENT DATE: 20210621
